FAERS Safety Report 7879677-4 (Version None)
Quarter: 2011Q4

REPORT INFORMATION
  Report Type: 
  Country: None (occurrence: None)
  Receive Date: 20111101
  Receipt Date: 20110714
  Transmission Date: 20120403
  Serious: No
  Sender: FDA-Public Use
  Company Number: US-ABBOTT-11P-163-0838952-00

PATIENT
  Age: 60 Year
  Sex: Female

DRUGS (8)
  1. DOXYCYCLINE [Suspect]
  2. ANTIDEPRESSANTS [Concomitant]
     Indication: PRODUCT USED FOR UNKNOWN INDICATION
  3. ALLEGRA [Concomitant]
     Indication: PRODUCT USED FOR UNKNOWN INDICATION
  4. KEFLEX [Suspect]
     Indication: PRODUCT USED FOR UNKNOWN INDICATION
  5. ADVAIR DISKUS 100/50 [Concomitant]
     Indication: PRODUCT USED FOR UNKNOWN INDICATION
  6. ZITHROMAX [Suspect]
  7. BIAXIN [Suspect]
     Indication: PRODUCT USED FOR UNKNOWN INDICATION
  8. SINGULAIR [Concomitant]
     Indication: PRODUCT USED FOR UNKNOWN INDICATION

REACTIONS (1)
  - DRUG INEFFECTIVE [None]
